FAERS Safety Report 19005186 (Version 1)
Quarter: 2021Q1

REPORT INFORMATION
  Report Type: Spontaneous
  Country: US (occurrence: US)
  Receive Date: 20210312
  Receipt Date: 20210312
  Transmission Date: 20210420
  Serious: No
  Sender: FDA-Public Use
  Company Number: US-KALA PHARAMACEUTICALS-2021KLA00010

PATIENT
  Sex: Female
  Weight: 68.03 kg

DRUGS (5)
  1. INVELTYS [Suspect]
     Active Substance: LOTEPREDNOL ETABONATE
     Dosage: 2 DROPS
     Route: 047
  2. INVELTYS [Suspect]
     Active Substance: LOTEPREDNOL ETABONATE
     Indication: IRITIS
     Dosage: 3 DROPS A DAY
     Route: 047
     Dates: start: 2020
  3. INVELTYS [Suspect]
     Active Substance: LOTEPREDNOL ETABONATE
     Dosage: 1 DROP
     Route: 047
  4. INVELTYS [Suspect]
     Active Substance: LOTEPREDNOL ETABONATE
     Dosage: 1 DROP, 4X/DAY IN EACH EYE
     Route: 047
     Dates: start: 202101
  5. UNSPECIFIED CHEMO TYPE TREATMENTS [Concomitant]
     Dosage: UNK

REACTIONS (5)
  - Drug ineffective for unapproved indication [Recovering/Resolving]
  - Visual impairment [Recovering/Resolving]
  - Intraocular pressure increased [Recovered/Resolved]
  - Vision blurred [Recovering/Resolving]
  - Iritis [Recovering/Resolving]

NARRATIVE: CASE EVENT DATE: 2020
